FAERS Safety Report 24118323 (Version 1)
Quarter: 2024Q3

REPORT INFORMATION
  Report Type: Spontaneous
  Country: US (occurrence: US)
  Receive Date: 20240722
  Receipt Date: 20240722
  Transmission Date: 20241017
  Serious: No
  Sender: MERCK
  Company Number: US-009507513-2407USA005400

PATIENT

DRUGS (1)
  1. BELSOMRA [Suspect]
     Active Substance: SUVOREXANT
     Dosage: 20 MILLIGRAM, QD
     Route: 048

REACTIONS (3)
  - Product dose omission issue [Unknown]
  - Product packaging quantity issue [Unknown]
  - No adverse event [Unknown]
